FAERS Safety Report 15507181 (Version 1)
Quarter: 2018Q4

REPORT INFORMATION
  Report Type: Spontaneous
  Country: CH (occurrence: CH)
  Receive Date: 20181016
  Receipt Date: 20181016
  Transmission Date: 20190205
  Serious: Yes (Hospitalization)
  Sender: FDA-Public Use
  Company Number: CH-PFIZER INC-2018410206

PATIENT
  Age: 84 Year
  Sex: Female

DRUGS (3)
  1. PONSTAN [Suspect]
     Active Substance: MEFENAMIC ACID
     Indication: BACK PAIN
     Dosage: 250MG AS NEEDED
     Route: 048
  2. BETASERC [BETAHISTINE HYDROCHLORIDE] [Concomitant]
     Dosage: 16 MG, AS NEEDED
     Route: 048
  3. IBUPROFEN. [Suspect]
     Active Substance: IBUPROFEN

REACTIONS (9)
  - Syncope [Recovering/Resolving]
  - Vertigo [Recovering/Resolving]
  - Hypovolaemic shock [Recovering/Resolving]
  - Melaena [Recovering/Resolving]
  - Haematemesis [Recovering/Resolving]
  - Gastric ulcer [Recovering/Resolving]
  - Haematemesis [Recovering/Resolving]
  - Duodenal ulcer [Recovering/Resolving]
  - Nausea [Recovering/Resolving]

NARRATIVE: CASE EVENT DATE: 2018
